FAERS Safety Report 20891469 (Version 2)
Quarter: 2022Q2

REPORT INFORMATION
  Report Type: Report from Study
  Country: GB (occurrence: GB)
  Receive Date: 20220530
  Receipt Date: 20220630
  Transmission Date: 20220721
  Serious: Yes (Hospitalization, Other)
  Sender: FDA-Public Use
  Company Number: GB-AMGEN-GBRSL2022091410

PATIENT
  Sex: Male

DRUGS (1)
  1. ARANESP [Suspect]
     Active Substance: DARBEPOETIN ALFA
     Indication: Product used for unknown indication
     Dosage: UNK
     Route: 065

REACTIONS (8)
  - Musculoskeletal disorder [Unknown]
  - Adverse event [Unknown]
  - Catheterisation cardiac [Unknown]
  - Renal impairment [Unknown]
  - Dialysis [Unknown]
  - Infection [Unknown]
  - Deep vein thrombosis [Unknown]
  - Dehydration [Unknown]
